FAERS Safety Report 17098238 (Version 1)
Quarter: 2019Q4

REPORT INFORMATION
  Report Type: Spontaneous
  Country: US (occurrence: US)
  Receive Date: 20191202
  Receipt Date: 20191202
  Transmission Date: 20200122
  Serious: No
  Sender: FDA-Public Use
  Company Number: US-PFIZER INC-2019509059

PATIENT
  Age: 69 Year
  Sex: Female

DRUGS (3)
  1. CRIZOTINIB [Suspect]
     Active Substance: CRIZOTINIB
     Indication: LUNG NEOPLASM MALIGNANT
  2. CRIZOTINIB [Suspect]
     Active Substance: CRIZOTINIB
     Indication: MALIGNANT PLEURAL EFFUSION
  3. CRIZOTINIB [Suspect]
     Active Substance: CRIZOTINIB
     Indication: GENE MUTATION
     Dosage: 250 MG, 2X/DAY

REACTIONS (3)
  - Nausea [Unknown]
  - Fatigue [Unknown]
  - Chest discomfort [Unknown]
